FAERS Safety Report 7653640-0 (Version None)
Quarter: 2011Q3

REPORT INFORMATION
  Report Type: 
  Country: None (occurrence: None)
  Receive Date: 20110803
  Receipt Date: 20110803
  Transmission Date: 20111222
  Serious: Yes (Other)
  Sender: FDA-Public Use
  Company Number: None

PATIENT
  Age: 60 Year
  Sex: Female
  Weight: 72.574 kg

DRUGS (1)
  1. AMITIZA [Suspect]
     Indication: IRRITABLE BOWEL SYNDROME
     Dosage: ONE CAPSULE
     Route: 048
     Dates: start: 20110719, end: 20110720

REACTIONS (5)
  - DYSSTASIA [None]
  - ASTHENIA [None]
  - DIARRHOEA [None]
  - PRESYNCOPE [None]
  - ABDOMINAL PAIN UPPER [None]
